FAERS Safety Report 4592843-9 (Version None)
Quarter: 2005Q1

REPORT INFORMATION
  Report Type: 
  Country: None (occurrence: None)
  Receive Date: 20050228
  Receipt Date: 20050104
  Transmission Date: 20050727
  Serious: Yes (Life-Threatening)
  Sender: FDA-Public Use
  Company Number: FR-ROCHE-391202

PATIENT
  Age: 45 Year
  Sex: Female
  Weight: 74 kg

DRUGS (11)
  1. DACLIZUMAB [Suspect]
     Route: 042
     Dates: start: 20041228, end: 20041228
  2. MYCOPHENOLATE MOFETIL [Suspect]
     Route: 048
     Dates: start: 20041228, end: 20041228
  3. MYCOPHENOLATE MOFETIL [Suspect]
     Route: 048
     Dates: start: 20041230, end: 20041231
  4. BACTRIM [Suspect]
     Indication: DRUG USE FOR UNKNOWN INDICATION
     Route: 065
     Dates: start: 20041228, end: 20041229
  5. STEROIDS NOS [Suspect]
     Route: 048
     Dates: start: 20041228, end: 20041228
  6. CORTANCYL [Suspect]
     Route: 048
     Dates: start: 20050104, end: 20050110
  7. SOLU-MEDROL [Suspect]
     Route: 042
     Dates: start: 20041231, end: 20041231
  8. ZANTAC [Suspect]
     Route: 065
     Dates: start: 20041228, end: 20041229
  9. AUGMENTIN '125' [Suspect]
     Indication: DRUG USE FOR UNKNOWN INDICATION
     Route: 065
     Dates: start: 20041227, end: 20041228
  10. HEPARIN [Suspect]
     Indication: DRUG USE FOR UNKNOWN INDICATION
     Route: 065
     Dates: start: 20050102, end: 20050110
  11. IMMUNE GLOBULIN INTRAVENOUS (HUMAN) [Suspect]
     Indication: DRUG USE FOR UNKNOWN INDICATION
     Route: 065
     Dates: start: 20041230, end: 20050110

REACTIONS (6)
  - HAEMODIALYSIS [None]
  - HAEMOGLOBIN DECREASED [None]
  - RENAL FAILURE ACUTE [None]
  - RETROPERITONEAL HAEMATOMA [None]
  - SHOCK HAEMORRHAGIC [None]
  - THROMBOTIC MICROANGIOPATHY [None]
